FAERS Safety Report 5222575-5 (Version None)
Quarter: 2007Q1

REPORT INFORMATION
  Report Type: 
  Country: None (occurrence: None)
  Receive Date: 20070124
  Receipt Date: 20070112
  Transmission Date: 20070707
  Serious: Yes (Other)
  Sender: FDA-Public Use
  Company Number: 234803

PATIENT
  Age: 10 Year
  Sex: Male

DRUGS (1)
  1. NUTROPIN [Suspect]
     Indication: GROWTH RETARDATION
     Dosage: 6/WEEK
     Dates: start: 20051001

REACTIONS (2)
  - AGGRESSION [None]
  - MUSCLE HYPERTROPHY [None]
